FAERS Safety Report 5989630-3 (Version None)
Quarter: 2008Q4

REPORT INFORMATION
  Report Type: 
  Country: None (occurrence: None)
  Receive Date: 20081208
  Receipt Date: 20081120
  Transmission Date: 20090506
  Serious: Yes (Death, Hospitalization)
  Sender: FDA-Public Use
  Company Number: 2008US003190

PATIENT
  Age: 76 Year
  Sex: Male

DRUGS (8)
  1. VESICARE [Suspect]
     Indication: POLLAKIURIA
     Dosage: 5 MG, UID/QD, ORAL
     Route: 048
     Dates: start: 20070101, end: 20081112
  2. ATENOLOL [Concomitant]
  3. ISOSORBIDE [Concomitant]
  4. FUROSEMIDE [Concomitant]
  5. LOVAZA [Concomitant]
  6. ASPIRIN [Concomitant]
  7. ROSUVASTATIN [Concomitant]
  8. NIACIN [Concomitant]

REACTIONS (3)
  - AORTIC ANEURYSM [None]
  - MYOCARDIAL INFARCTION [None]
  - SHOCK [None]
